FAERS Safety Report 9185361 (Version 1)
Quarter: 2013Q1

REPORT INFORMATION
  Report Type: Spontaneous
  Country: IT (occurrence: None)
  Receive Date: 20130321
  Receipt Date: 20130321
  Transmission Date: 20140127
  Serious: Yes (Other)
  Sender: FDA-Public Use
  Company Number: 1632654

PATIENT
  Age: 80 Year
  Sex: Female
  Weight: 69 kg

DRUGS (1)
  1. (CARBOPLATIN) [Suspect]
     Indication: OVARIAN CANCER
     Dosage: CYCLICAL
     Route: 042
     Dates: start: 20130205, end: 20130226

REACTIONS (2)
  - Erythema [None]
  - Dyspnoea [None]
